FAERS Safety Report 9230947 (Version 18)
Quarter: 2015Q3

REPORT INFORMATION
  Report Type: Report from Study
  Country: CA (occurrence: CA)
  Receive Date: 20130415
  Receipt Date: 20150824
  Transmission Date: 20151125
  Serious: Yes (Other)
  Sender: FDA-Public Use
  Company Number: CA-ROCHE-1186648

PATIENT
  Age: 82 Year
  Sex: Female
  Weight: 49.3 kg

DRUGS (17)
  1. VEMURAFENIB [Suspect]
     Active Substance: VEMURAFENIB
     Dosage: DATE OF LAST DOSE PRIOR TO SAE: 12/NOV/2013
     Route: 048
     Dates: start: 20130724
  2. VEMURAFENIB [Suspect]
     Active Substance: VEMURAFENIB
     Indication: MALIGNANT MELANOMA
     Dosage: LAST DOSE PRIOR TO SAE ONSET  09/DEC/2012, 30/APR/2013, 19/JUL/2013
     Route: 048
     Dates: start: 20111215, end: 20130723
  3. AMLODIPINE [Concomitant]
     Active Substance: AMLODIPINE BESYLATE
     Route: 065
     Dates: start: 201104, end: 201404
  4. XALATAN [Concomitant]
     Active Substance: LATANOPROST
     Dosage: 2 DROP
     Route: 065
     Dates: start: 200905
  5. SYSTANE BALANCE [Concomitant]
     Active Substance: PROPYLENE GLYCOL
     Dosage: 1 DROP
     Route: 065
     Dates: start: 200905
  6. VAGIFEM [Concomitant]
     Active Substance: ESTRADIOL
     Route: 065
     Dates: start: 2010
  7. AVAPRO [Concomitant]
     Active Substance: IRBESARTAN
     Route: 065
     Dates: start: 2010
  8. NEXIUM [Concomitant]
     Active Substance: ESOMEPRAZOLE MAGNESIUM
     Route: 065
     Dates: start: 2006
  9. SYSTANE BALANCE [Concomitant]
     Active Substance: PROPYLENE GLYCOL
     Dosage: 1 DROP
     Route: 065
     Dates: start: 2009
  10. ACTONEL [Concomitant]
     Active Substance: RISEDRONATE SODIUM
     Route: 065
     Dates: start: 2011
  11. ALPHAGAN P [Concomitant]
     Active Substance: BRIMONIDINE TARTRATE
     Dosage: 2 DROP
     Route: 065
     Dates: start: 2010
  12. BACTROBAN [Concomitant]
     Active Substance: MUPIROCIN\MUPIROCIN CALCIUM
     Dosage: 1 APP
     Route: 065
     Dates: start: 20121212
  13. METFORMIN [Concomitant]
     Active Substance: METFORMIN HYDROCHLORIDE
     Route: 065
     Dates: start: 201105
  14. PULMICORT TURBUHALER [Concomitant]
     Active Substance: BUDESONIDE
     Route: 065
     Dates: start: 201204, end: 2012
  15. COUMADIN [Concomitant]
     Active Substance: WARFARIN SODIUM
     Route: 065
     Dates: start: 20120813
  16. AMLODIPINE [Concomitant]
     Active Substance: AMLODIPINE BESYLATE
     Route: 065
     Dates: start: 2010
  17. SIMETHICONE (DIMETHICONE) [Concomitant]
     Active Substance: DIMETHICONE
     Route: 065
     Dates: start: 20121212, end: 201301

REACTIONS (4)
  - Keratoacanthoma [Recovered/Resolved]
  - Keratoacanthoma [Recovered/Resolved]
  - Keratoacanthoma [Recovered/Resolved]
  - Keratoacanthoma [Recovered/Resolved]

NARRATIVE: CASE EVENT DATE: 20121210
